FAERS Safety Report 20172543 (Version 1)
Quarter: 2021Q4

REPORT INFORMATION
  Report Type: Spontaneous
  Country: US (occurrence: US)
  Receive Date: 20211210
  Receipt Date: 20211210
  Transmission Date: 20220304
  Serious: No
  Sender: FDA-Public Use
  Company Number: US-009507513-2111USA004457

PATIENT
  Age: 55 Year
  Sex: Male

DRUGS (6)
  1. PRINIVIL [Suspect]
     Active Substance: LISINOPRIL
     Indication: Hypertensive urgency
     Dosage: 20 MILLIGRAM (MG) DAILY
     Route: 048
  2. PRINIVIL [Suspect]
     Active Substance: LISINOPRIL
     Indication: Page kidney
  3. CARVEDILOL [Concomitant]
     Active Substance: CARVEDILOL
     Indication: Hypertensive urgency
  4. CARVEDILOL [Concomitant]
     Active Substance: CARVEDILOL
     Indication: Page kidney
  5. LOSARTAN [Concomitant]
     Active Substance: LOSARTAN
     Indication: Hypertensive urgency
     Dosage: 100 MILLIGRAM, QD
     Route: 048
  6. LOSARTAN [Concomitant]
     Active Substance: LOSARTAN
     Indication: Page kidney

REACTIONS (1)
  - Product use issue [Unknown]
